FAERS Safety Report 5806252-5 (Version None)
Quarter: 2008Q3

REPORT INFORMATION
  Report Type: 
  Country: None (occurrence: None)
  Receive Date: 20080710
  Receipt Date: 20080701
  Transmission Date: 20090109
  Serious: Yes (Death, Other)
  Sender: FDA-Public Use
  Company Number: US-PURDUE-USA_2008_0033695

PATIENT
  Sex: Female

DRUGS (4)
  1. DILAUDID-HP [Suspect]
     Indication: POSTOPERATIVE ANALGESIA
     Dosage: UNK, UNK
     Route: 065
     Dates: start: 20070425, end: 20070426
  2. VICODIN [Suspect]
     Indication: POSTOPERATIVE ANALGESIA
     Dosage: UNK, UNK
     Dates: start: 20070426
  3. XANAX [Suspect]
     Indication: POSTOPERATIVE ANALGESIA
     Dosage: UNK, UNK
     Dates: start: 20070426
  4. MORPHINE [Suspect]
     Indication: POSTOPERATIVE ANALGESIA
     Dosage: UNK, UNK
     Dates: start: 20070426

REACTIONS (7)
  - APNOEIC ATTACK [None]
  - CARDIAC ARREST [None]
  - CHRONIC OBSTRUCTIVE PULMONARY DISEASE [None]
  - DRUG HYPERSENSITIVITY [None]
  - INCORRECT DOSE ADMINISTERED [None]
  - RESPIRATORY FAILURE [None]
  - UNRESPONSIVE TO STIMULI [None]
